FAERS Safety Report 19393336 (Version 1)
Quarter: 2021Q2

REPORT INFORMATION
  Report Type: Spontaneous
  Country: US (occurrence: US)
  Receive Date: 20210608
  Receipt Date: 20210608
  Transmission Date: 20210717
  Serious: Yes (Disabling)
  Sender: FDA-Public Use
  Company Number: None

PATIENT
  Age: 49 Year
  Sex: Female
  Weight: 48.6 kg

DRUGS (4)
  1. MZYRTEC [Concomitant]
  2. CONCERTA [Concomitant]
     Active Substance: METHYLPHENIDATE HYDROCHLORIDE
  3. TOPAMAX [Concomitant]
     Active Substance: TOPIRAMATE
  4. METHYLPHENIDATE [METHYLPHENIDATE HYDROCHLORIDE] [Suspect]
     Active Substance: METHYLPHENIDATE HYDROCHLORIDE
     Indication: ATTENTION DEFICIT HYPERACTIVITY DISORDER
     Dosage: ?          QUANTITY:30 TABLET(S);?
     Route: 048
     Dates: start: 20210502, end: 20210608

REACTIONS (3)
  - Product physical issue [None]
  - Product use complaint [None]
  - Product quality issue [None]

NARRATIVE: CASE EVENT DATE: 20210526
